FAERS Safety Report 15728723 (Version 1)
Quarter: 2018Q4

REPORT INFORMATION
  Report Type: Spontaneous
  Country: JP (occurrence: JP)
  Receive Date: 20181217
  Receipt Date: 20181217
  Transmission Date: 20190205
  Serious: Yes (Death, Hospitalization)
  Sender: FDA-Public Use
  Company Number: JP-CELGENEUS-JPN-20181004220

PATIENT
  Age: 8 Decade
  Sex: Male

DRUGS (2)
  1. ISTODAX [Suspect]
     Active Substance: ROMIDEPSIN
     Indication: PERIPHERAL T-CELL LYMPHOMA UNSPECIFIED
     Dosage: UNKNOWN
     Route: 041
     Dates: start: 20180914, end: 2018
  2. ISTODAX [Suspect]
     Active Substance: ROMIDEPSIN
     Dosage: 10 MILLIGRAM/SQ. METER
     Route: 041
     Dates: start: 2018, end: 20181114

REACTIONS (4)
  - Diarrhoea [Recovered/Resolved]
  - Tumour associated fever [Recovering/Resolving]
  - Thrombocytopenia [Recovered/Resolved]
  - Peripheral T-cell lymphoma unspecified [Fatal]

NARRATIVE: CASE EVENT DATE: 20180914
